FAERS Safety Report 10784802 (Version 1)
Quarter: 2015Q1

REPORT INFORMATION
  Report Type: Spontaneous
  Country: KR (occurrence: None)
  Receive Date: 20150209
  Receipt Date: 20150209
  Transmission Date: 20150721
  Serious: Yes (Hospitalization)
  Sender: FDA-Public Use
  Company Number: FK201500612

PATIENT
  Age: 7 Year
  Sex: Male

DRUGS (4)
  1. L-ASPARGINASE [Concomitant]
     Active Substance: ASPARAGINASE
  2. DEXAMETHASONE. [Concomitant]
     Active Substance: DEXAMETHASONE
  3. CYTARABINE. [Suspect]
     Active Substance: CYTARABINE
     Indication: ACUTE LYMPHOCYTIC LEUKAEMIA
     Route: 037
  4. VINCRISTINE [Concomitant]
     Active Substance: VINCRISTINE

REACTIONS (3)
  - Progressive multifocal leukoencephalopathy [None]
  - Cerebral vasoconstriction [None]
  - Cerebral infarction [None]
